FAERS Safety Report 8574373-2 (Version None)
Quarter: 2012Q3

REPORT INFORMATION
  Report Type: 
  Country: None (occurrence: None)
  Receive Date: 20120806
  Receipt Date: 20120801
  Transmission Date: 20120928
  Serious: Yes (Other)
  Sender: FDA-Public Use
  Company Number: DE-JNJFOC-20120802378

PATIENT
  Sex: Male
  Weight: 100 kg

DRUGS (1)
  1. XARELTO [Suspect]
     Indication: ANTICOAGULANT THERAPY
     Route: 048
     Dates: start: 20120723, end: 20120726

REACTIONS (7)
  - DYSPNOEA [None]
  - HEART RATE INCREASED [None]
  - BLOOD PRESSURE SYSTOLIC DECREASED [None]
  - VERTIGO [None]
  - BLOOD PRESSURE DIASTOLIC INCREASED [None]
  - SOMNOLENCE [None]
  - HEADACHE [None]
